FAERS Safety Report 10129263 (Version 1)
Quarter: 2014Q2

REPORT INFORMATION
  Report Type: Spontaneous
  Country: US (occurrence: None)
  Receive Date: 20140424
  Receipt Date: 20140424
  Transmission Date: 20141212
  Serious: Yes (Other)
  Sender: FDA-Public Use
  Company Number: None

PATIENT
  Age: 34 Year
  Sex: Female
  Weight: 63.96 kg

DRUGS (1)
  1. PARAGARD [Suspect]
     Indication: CONTRACEPTION

REACTIONS (3)
  - Pregnancy with contraceptive device [None]
  - Maternal exposure during pregnancy [None]
  - Abortion spontaneous [None]
